FAERS Safety Report 14663239 (Version 2)
Quarter: 2018Q2

REPORT INFORMATION
  Report Type: Report from Study
  Country: None (occurrence: ES)
  Receive Date: 20180321
  Receipt Date: 20180402
  Transmission Date: 20180711
  Serious: Yes (Life-Threatening, Hospitalization, Other)
  Sender: FDA-Public Use
  Company Number: ES-BAUSCH-BL-2018-006583

PATIENT
  Age: 74 Year
  Sex: Male

DRUGS (4)
  1. DEXAMETASONA [Suspect]
     Active Substance: DEXAMETHASONE
     Route: 065
     Dates: start: 20160113, end: 20170203
  2. POMALIDOMIDA [Suspect]
     Active Substance: POMALIDOMIDE
     Indication: PLASMA CELL MYELOMA
     Route: 048
     Dates: start: 20160506, end: 20160518
  3. DEXAMETASONA [Suspect]
     Active Substance: DEXAMETHASONE
     Indication: PLASMA CELL MYELOMA
     Route: 065
     Dates: start: 20160506, end: 20160513
  4. POMALIDOMIDA [Suspect]
     Active Substance: POMALIDOMIDE
     Route: 048
     Dates: start: 20160113, end: 20160202

REACTIONS (1)
  - Pneumonia [Recovered/Resolved]

NARRATIVE: CASE EVENT DATE: 20160508
